FAERS Safety Report 7826915-X (Version None)
Quarter: 2011Q4

REPORT INFORMATION
  Report Type: 
  Country: None (occurrence: None)
  Receive Date: 20111019
  Receipt Date: 20111019
  Transmission Date: 20120403
  Serious: Yes (Hospitalization)
  Sender: FDA-Public Use
  Company Number: None

PATIENT
  Sex: Female
  Weight: 76.2043 kg

DRUGS (1)
  1. AMPYRA [Suspect]
     Indication: MULTIPLE SCLEROSIS
     Dosage: 10 MG 8A/8P 1 DOSE ON
     Dates: start: 20110818, end: 20110821

REACTIONS (2)
  - MUSCLE DISORDER [None]
  - GAIT DISTURBANCE [None]
